FAERS Safety Report 5639447-4 (Version None)
Quarter: 2008Q1

REPORT INFORMATION
  Report Type: 
  Country: None (occurrence: None)
  Receive Date: 20080131
  Receipt Date: 20071214
  Transmission Date: 20080703
  Serious: No
  Sender: FDA-Public Use
  Company Number: 163-21880-07120891

PATIENT
  Age: 72 Year
  Sex: Male

DRUGS (5)
  1. REVLIMID [Suspect]
     Indication: MULTIPLE MYELOMA
     Dosage: 15 MG, 1 IN 1 D, ORAL
     Route: 048
     Dates: start: 20071204, end: 20071211
  2. SIMVASTATIN [Concomitant]
  3. LASIX [Concomitant]
  4. METOPROLOL TARTRATE [Concomitant]
  5. POTASSIUM (POTASSIUM) [Concomitant]

REACTIONS (1)
  - PLATELET COUNT DECREASED [None]
